FAERS Safety Report 11217856 (Version 3)
Quarter: 2016Q2

REPORT INFORMATION
  Report Type: Report from Study
  Country: US (occurrence: US)
  Receive Date: 20150625
  Receipt Date: 20160603
  Transmission Date: 20160815
  Serious: No
  Sender: FDA-Public Use
  Company Number: US-AMGEN-USASP2015061702

PATIENT
  Age: 41 Year
  Sex: Female

DRUGS (5)
  1. ENBREL [Suspect]
     Active Substance: ETANERCEPT
     Indication: RHEUMATOID ARTHRITIS
     Dosage: 50 MG, TWICE WEEKLY
     Route: 065
     Dates: start: 20130909
  2. ENBREL [Suspect]
     Active Substance: ETANERCEPT
     Indication: PSORIASIS
  3. ENBREL [Suspect]
     Active Substance: ETANERCEPT
     Indication: PSORIATIC ARTHROPATHY
     Dosage: UNK
     Route: 065
  4. STELARA [Suspect]
     Active Substance: USTEKINUMAB
     Indication: PRODUCT USED FOR UNKNOWN INDICATION
     Dosage: UNK
     Route: 065
  5. ENBREL [Suspect]
     Active Substance: ETANERCEPT
     Indication: PSORIASIS

REACTIONS (13)
  - Throat irritation [Recovered/Resolved]
  - Cough [Not Recovered/Not Resolved]
  - Nausea [Unknown]
  - Bronchitis [Recovered/Resolved]
  - Diarrhoea [Unknown]
  - Fatigue [Recovered/Resolved]
  - Arthralgia [Recovered/Resolved]
  - Vomiting [Unknown]
  - Pyrexia [Recovered/Resolved]
  - Productive cough [Recovered/Resolved]
  - Influenza like illness [Recovered/Resolved]
  - Lymphadenopathy [Recovered/Resolved]
  - Upper respiratory tract infection [Recovered/Resolved]

NARRATIVE: CASE EVENT DATE: 20150607
